FAERS Safety Report 5801121-9 (Version None)
Quarter: 2008Q3

REPORT INFORMATION
  Report Type: 
  Country: None (occurrence: None)
  Receive Date: 20080707
  Receipt Date: 20080624
  Transmission Date: 20090109
  Serious: Yes (Other)
  Sender: FDA-Public Use
  Company Number: PHEH2008US05675

PATIENT
  Age: 65 Year
  Sex: Female

DRUGS (14)
  1. RECLAST [Suspect]
     Indication: OSTEOPOROSIS
     Dosage: 5 MG IV ONCE
     Dates: start: 20080623
  2. METFORMIN HCL [Concomitant]
  3. PREVACID [Concomitant]
  4. ASPIRIN [Concomitant]
     Dosage: 81 MG
  5. DIAZEPAM [Concomitant]
  6. POTASSIUM CHLORIDE [Concomitant]
  7. LISINOPRIL AND HYDROCHLOROTHIAZIDE [Concomitant]
     Dosage: 20/25 MG QD
  8. FOLIC ACID [Concomitant]
  9. VITAMINS [Concomitant]
  10. NEURONTIN [Concomitant]
     Dosage: 300 MG, TID
  11. LEXAPRO [Concomitant]
     Dosage: 20 MG, QD
  12. FENTANYL [Concomitant]
     Route: 062
  13. ESTROGEN NOS [Concomitant]
     Route: 067
  14. GLIPIZIDE [Concomitant]
     Dosage: 10 MG, QD

REACTIONS (3)
  - DYSARTHRIA [None]
  - HEADACHE [None]
  - PYREXIA [None]
